FAERS Safety Report 7095187-9 (Version None)
Quarter: 2010Q4

REPORT INFORMATION
  Report Type: 
  Country: None (occurrence: None)
  Receive Date: 20101104
  Receipt Date: 20101025
  Transmission Date: 20110411
  Serious: Yes (Other)
  Sender: FDA-Public Use
  Company Number: 1000016277

PATIENT
  Age: 46 Year
  Sex: Female
  Weight: 115.6 kg

DRUGS (20)
  1. SAVELLA [Suspect]
     Indication: FIBROMYALGIA
     Dosage: (12.5 MG (12.5 MG, 1 IN 1 D)) (25 MG (12.5 MG, 2 IN 1 D)) (50 MG (25 MG, 2 IN 1 D)) (100 MG (50 MG,
     Route: 048
     Dates: start: 20100601, end: 20100601
  2. SAVELLA [Suspect]
     Indication: FIBROMYALGIA
     Dosage: (12.5 MG (12.5 MG, 1 IN 1 D)) (25 MG (12.5 MG, 2 IN 1 D)) (50 MG (25 MG, 2 IN 1 D)) (100 MG (50 MG,
     Route: 048
     Dates: start: 20100601, end: 20100601
  3. SAVELLA [Suspect]
     Indication: FIBROMYALGIA
     Dosage: (12.5 MG (12.5 MG, 1 IN 1 D)) (25 MG (12.5 MG, 2 IN 1 D)) (50 MG (25 MG, 2 IN 1 D)) (100 MG (50 MG,
     Route: 048
     Dates: start: 20100601, end: 20100601
  4. SAVELLA [Suspect]
     Indication: FIBROMYALGIA
     Dosage: (12.5 MG (12.5 MG, 1 IN 1 D)) (25 MG (12.5 MG, 2 IN 1 D)) (50 MG (25 MG, 2 IN 1 D)) (100 MG (50 MG,
     Route: 048
     Dates: start: 20100601, end: 20100701
  5. SAVELLA [Suspect]
     Indication: FIBROMYALGIA
     Dosage: (12.5 MG (12.5 MG, 1 IN 1 D)) (25 MG (12.5 MG, 2 IN 1 D)) (50 MG (25 MG, 2 IN 1 D)) (100 MG (50 MG,
     Route: 048
     Dates: start: 20100701, end: 20100801
  6. SAVELLA [Suspect]
     Indication: FIBROMYALGIA
     Dosage: 400 MG (200 MG, 2 IN 1 D), ORAL
     Route: 048
     Dates: start: 20100801, end: 20100914
  7. MAXAIR [Suspect]
     Indication: ASTHMA
     Dosage: 2 IN 1 D
     Route: 055
  8. ADVAIR HFA [Suspect]
     Indication: ASTHMA
     Dosage: 2 PUFFS BID (2 IN 1 D)
     Route: 055
  9. PULMICORT FLEXHALER [Suspect]
     Indication: ASTHMA
     Dosage: 360 MCG (180 MCG, 2 IN 1 D)
     Route: 055
  10. ZYFLO CR [Suspect]
     Indication: ASTHMA
     Dosage: 2400 MG (1200 MG, 2 IN 1 D), ORAL
     Route: 048
  11. THEOPHYLLINE [Suspect]
     Indication: ASTHMA
     Dosage: 200 MG (200 MG, QAM), ORAL 400 MG (400 MG, QHS), ORAL
     Route: 048
  12. XYZAL [Concomitant]
  13. ELETRIPTAN HYDROBROMIDE [Suspect]
  14. RHINOCORT [Concomitant]
  15. NEXIUM [Concomitant]
  16. TOPAMAX [Concomitant]
  17. CYANOCOBALAMIN [Concomitant]
  18. PERCOCET [Concomitant]
  19. MULTI-VITAMINS [Concomitant]
  20. CALCIUM/VITAMIN D [Concomitant]

REACTIONS (5)
  - BLOOD PRESSURE INCREASED [None]
  - CATARACT [None]
  - CONDITION AGGRAVATED [None]
  - OVERDOSE [None]
  - SINUSITIS [None]
